FAERS Safety Report 9759396 (Version 1)
Quarter: 2013Q4

REPORT INFORMATION
  Report Type: Spontaneous
  Country: US (occurrence: None)
  Receive Date: 20131216
  Receipt Date: 20131216
  Transmission Date: 20140711
  Serious: Yes (Hospitalization)
  Sender: FDA-Public Use
  Company Number: 163-21880-12040861(0)

PATIENT
  Age: 74 Year
  Sex: Female

DRUGS (1)
  1. REVLIMID (LENALIDOMIDE) (25 MILLIGRAM CAPSULES) [Suspect]
     Indication: PLASMA CELL MYELOMA
     Dosage: 25 UG, 1 IN 1 D, PO?15 UG, DAILY X 21 DAYS, 7 DAYS OFF, PO ?15 UG, DAILY X 21 DAYS, 7 DAYS OFF, PO

REACTIONS (1)
  - Full blood count decreased [None]
